FAERS Safety Report 5224375-9 (Version None)
Quarter: 2007Q1

REPORT INFORMATION
  Report Type: 
  Country: None (occurrence: None)
  Receive Date: 20070130
  Receipt Date: 20070122
  Transmission Date: 20070707
  Serious: Yes (Other)
  Sender: FDA-Public Use
  Company Number: GR-PFIZER INC-2007006556

PATIENT
  Sex: Male

DRUGS (2)
  1. EPANUTIN [Suspect]
     Indication: EPILEPSY
     Route: 048
  2. MEDROL [Concomitant]
     Route: 048

REACTIONS (2)
  - DERMATITIS BULLOUS [None]
  - EPIDERMOLYSIS [None]
